FAERS Safety Report 15498425 (Version 10)
Quarter: 2020Q4

REPORT INFORMATION
  Report Type: Report from Study
  Country: FR (occurrence: FR)
  Receive Date: 20181015
  Receipt Date: 20201110
  Transmission Date: 20210113
  Serious: Yes (Other)
  Sender: FDA-Public Use
  Company Number: PHHY2018FR000656

PATIENT
  Age: 25 Year
  Sex: Female

DRUGS (8)
  1. COSENTYX [Suspect]
     Active Substance: SECUKINUMAB
     Dosage: 300 MG, UNKNOWN
     Route: 065
     Dates: start: 20191105
  2. COSENTYX [Suspect]
     Active Substance: SECUKINUMAB
     Dosage: 300 MG, UNKNOWN
     Route: 065
     Dates: start: 20190802
  3. COSENTYX [Suspect]
     Active Substance: SECUKINUMAB
     Dosage: UNK(INTERMEDIATE TREATMENT BREAK)
     Route: 065
     Dates: start: 20180701, end: 20180901
  4. COSENTYX [Suspect]
     Active Substance: SECUKINUMAB
     Dosage: 300 MG, UNKNOWN
     Route: 065
     Dates: start: 20180902, end: 20190709
  5. COSENTYX [Suspect]
     Active Substance: SECUKINUMAB
     Dosage: 300 MG, UNKNOWN
     Route: 065
     Dates: start: 20180323, end: 20180630
  6. COSENTYX [Suspect]
     Active Substance: SECUKINUMAB
     Dosage: 150 MG, UNKNOWN
     Route: 065
     Dates: start: 20190710, end: 20190801
  7. COSENTYX [Suspect]
     Active Substance: SECUKINUMAB
     Dosage: 150 MG, UNKNOWN
     Route: 065
     Dates: start: 20171031, end: 20180322
  8. COSENTYX [Suspect]
     Active Substance: SECUKINUMAB
     Indication: ANKYLOSING SPONDYLITIS
     Dosage: 150 MG, UNKNOWN
     Route: 065
     Dates: start: 20171010, end: 20171030

REACTIONS (10)
  - Paronychia [Recovered/Resolved]
  - Toothache [Not Recovered/Not Resolved]
  - Dermatosis [Not Recovered/Not Resolved]
  - Cytomegalovirus hepatitis [Recovered/Resolved]
  - Enteritis [Recovered/Resolved]
  - Paronychia [Recovered/Resolved]
  - Pericarditis [Recovered/Resolved]
  - Influenza [Recovered/Resolved]
  - Drug ineffective [Not Recovered/Not Resolved]
  - Vulvovaginal mycotic infection [Recovered/Resolved]

NARRATIVE: CASE EVENT DATE: 20180306
